FAERS Safety Report 12873277 (Version 1)
Quarter: 2016Q4

REPORT INFORMATION
  Report Type: Report from Study
  Country: US (occurrence: US)
  Receive Date: 20161021
  Receipt Date: 20161021
  Transmission Date: 20170207
  Serious: Yes (Hospitalization)
  Sender: FDA-Public Use
  Company Number: US-BAYER-2016-157924

PATIENT
  Age: 70 Year
  Sex: Female

DRUGS (1)
  1. NEXAVAR [Suspect]
     Active Substance: SORAFENIB
     Indication: HEPATOCELLULAR CARCINOMA
     Dosage: 200 MG, BID
     Route: 048
     Dates: start: 20160730, end: 20160928

REACTIONS (9)
  - Blood pressure increased [None]
  - Decreased appetite [None]
  - Gout [None]
  - Diarrhoea [None]
  - Fatigue [None]
  - Abasia [None]
  - Urinary tract infection [None]
  - Rash [None]
  - Blood glucose increased [None]

NARRATIVE: CASE EVENT DATE: 2016
